FAERS Safety Report 20830323 (Version 1)
Quarter: 2022Q2

REPORT INFORMATION
  Report Type: Spontaneous
  Country: FR (occurrence: FR)
  Receive Date: 20220514
  Receipt Date: 20220514
  Transmission Date: 20220720
  Serious: Yes (Hospitalization)
  Sender: FDA-Public Use
  Company Number: None

PATIENT
  Age: 57 Year
  Sex: Male

DRUGS (3)
  1. OXALIPLATIN [Suspect]
     Active Substance: OXALIPLATIN
     Indication: Adenocarcinoma of colon
     Dosage: 1 FP,THERAPY END DATE : NASK
     Route: 041
     Dates: start: 20210808
  2. FLUOROURACIL [Suspect]
     Active Substance: FLUOROURACIL
     Indication: Adenocarcinoma of colon
     Dosage: THERAPY END DATE : NASK,1 FP
     Route: 041
     Dates: start: 20220208
  3. VECTIBIX [Suspect]
     Active Substance: PANITUMUMAB
     Indication: Adenocarcinoma of colon
     Dosage: THERAPY END DATE : NASK,VECTIBIX 20 MG/ML, CONCENTRATE FOR SOLUTION FOR INFUSION
     Route: 041
     Dates: start: 20210808

REACTIONS (1)
  - IgA nephropathy [Unknown]

NARRATIVE: CASE EVENT DATE: 20211231
